FAERS Safety Report 11595700 (Version 1)
Quarter: 2015Q4

REPORT INFORMATION
  Report Type: Spontaneous
  Country: US (occurrence: None)
  Receive Date: 20151005
  Receipt Date: 20151005
  Transmission Date: 20160304
  Serious: No
  Sender: FDA-Public Use
  Company Number: None

PATIENT
  Age: 47 Year
  Sex: Female

DRUGS (4)
  1. FUROSEMIDE. [Concomitant]
     Active Substance: FUROSEMIDE
  2. LETAIRIS [Concomitant]
     Active Substance: AMBRISENTAN
  3. ADCIRCA [Suspect]
     Active Substance: TADALAFIL
     Indication: HEART DISEASE CONGENITAL
     Route: 048
     Dates: start: 20150923
  4. SPIRONOLACTONE. [Concomitant]
     Active Substance: SPIRONOLACTONE

REACTIONS (1)
  - Headache [None]

NARRATIVE: CASE EVENT DATE: 20150929
